FAERS Safety Report 4565323-4 (Version None)
Quarter: 2005Q1

REPORT INFORMATION
  Report Type: 
  Country: None (occurrence: None)
  Receive Date: 20050126
  Receipt Date: 20050107
  Transmission Date: 20050727
  Serious: Yes (Hospitalization)
  Sender: FDA-Public Use
  Company Number: JP_040904504

PATIENT
  Age: 68 Year
  Sex: Male
  Weight: 67 kg

DRUGS (4)
  1. GEMZAR [Suspect]
     Indication: BILE DUCT CANCER
     Dosage: 1680 MG OTHER
     Route: 042
     Dates: start: 20040526, end: 20040707
  2. LASIX [Concomitant]
  3. AM [Concomitant]
     Indication: ASCITES
  4. ALDACTONE [Concomitant]

REACTIONS (3)
  - ANOREXIA [None]
  - ASCITES [None]
  - INTERSTITIAL LUNG DISEASE [None]
